FAERS Safety Report 8063743-7 (Version None)
Quarter: 2012Q1

REPORT INFORMATION
  Report Type: 
  Country: None (occurrence: None)
  Receive Date: 20120123
  Receipt Date: 20120113
  Transmission Date: 20120608
  Serious: Yes (Hospitalization, Other)
  Sender: FDA-Public Use
  Company Number: PHHY2012SE003596

PATIENT
  Age: 73 Year
  Sex: Female

DRUGS (9)
  1. LOCOID [Concomitant]
  2. FUROSEMIDE [Concomitant]
  3. DIPRODERM [Concomitant]
  4. CALCIUM CARBONATE [Concomitant]
  5. OVESTERIN [Concomitant]
  6. SPIRONOLACTONE [Concomitant]
  7. OMEPRAZOLE [Concomitant]
  8. METHOTREXATE [Suspect]
     Indication: RHEUMATOID ARTHRITIS
     Dosage: 20 MG/WEEK
     Dates: start: 20110712, end: 20111121
  9. SIMVASTATIN [Concomitant]

REACTIONS (6)
  - ASTHENIA [None]
  - FATIGUE [None]
  - MOUTH ULCERATION [None]
  - NAUSEA [None]
  - WEIGHT DECREASED [None]
  - STOMATITIS [None]
